FAERS Safety Report 5684724-4 (Version None)
Quarter: 2008Q1

REPORT INFORMATION
  Report Type: 
  Country: None (occurrence: None)
  Receive Date: 20080328
  Receipt Date: 19810402
  Transmission Date: 20080703
  Serious: Yes (Death, Other)
  Sender: FDA-Public Use
  Company Number: AU-ROCHE-1685

PATIENT
  Age: 56 Year
  Sex: Male

DRUGS (1)
  1. NAPROSYN [Suspect]
     Indication: OSTEOARTHRITIS
     Route: 048
     Dates: start: 19801001, end: 19810203

REACTIONS (20)
  - ARTERIOSCLEROSIS [None]
  - ASCITES [None]
  - BACK PAIN [None]
  - BONE MARROW FAILURE [None]
  - CHRONIC OBSTRUCTIVE PULMONARY DISEASE [None]
  - CIRRHOSIS ALCOHOLIC [None]
  - COAGULATION TEST ABNORMAL [None]
  - GASTRITIS EROSIVE [None]
  - HAEMATEMESIS [None]
  - HEPATOMEGALY [None]
  - JAUNDICE [None]
  - MELAENA [None]
  - MULTI-ORGAN FAILURE [None]
  - MYOCARDIAL FIBROSIS [None]
  - PNEUMONIA KLEBSIELLA [None]
  - PULMONARY OEDEMA [None]
  - PYREXIA [None]
  - RENAL TUBULAR ATROPHY [None]
  - URINARY TRACT INFECTION [None]
  - VARICES OESOPHAGEAL [None]
